FAERS Safety Report 9642445 (Version 1)
Quarter: 2013Q4

REPORT INFORMATION
  Report Type: Spontaneous
  Country: US (occurrence: US)
  Receive Date: 20131024
  Receipt Date: 20131024
  Transmission Date: 20140711
  Serious: No
  Sender: FDA-Public Use
  Company Number: US-009507513-1310USA007700

PATIENT
  Sex: 0

DRUGS (1)
  1. INVANZ [Suspect]
     Indication: INFECTION PROPHYLAXIS
     Dosage: 1 GRAM/ ONE DOSE
     Route: 042
     Dates: start: 201309

REACTIONS (1)
  - Oral candidiasis [Recovered/Resolved]
